FAERS Safety Report 14624554 (Version 1)
Quarter: 2018Q1

REPORT INFORMATION
  Report Type: Spontaneous
  Country: US (occurrence: US)
  Receive Date: 20180311
  Receipt Date: 20180311
  Transmission Date: 20180509
  Serious: Yes (Disabling, Other)
  Sender: FDA-Public Use
  Company Number: None

PATIENT
  Age: 39 Year
  Sex: Female
  Weight: 69.3 kg

DRUGS (13)
  1. TAXOTERE [Concomitant]
     Active Substance: DOCETAXEL
  2. COQ10 [Concomitant]
     Active Substance: UBIDECARENONE
  3. HERCEPTIN [Concomitant]
     Active Substance: TRASTUZUMAB
  4. CLARITIN [Concomitant]
     Active Substance: LORATADINE
  5. OCREVUS [Suspect]
     Active Substance: OCRELIZUMAB
     Indication: MULTIPLE SCLEROSIS
     Dosage: 1 INFUSION; EVERY SIX MONTHS?
     Route: 042
     Dates: start: 20171130, end: 20171215
  6. CARBOPLATIN. [Concomitant]
     Active Substance: CARBOPLATIN
  7. TOMPIRIMATE [Concomitant]
  8. VIT. D [Concomitant]
  9. FISH OIL [Concomitant]
     Active Substance: FISH OIL
  10. PRIMIDONE. [Concomitant]
     Active Substance: PRIMIDONE
  11. PROZAC [Concomitant]
     Active Substance: FLUOXETINE HYDROCHLORIDE
  12. OCREVUS [Concomitant]
     Active Substance: OCRELIZUMAB
  13. PERJETA [Concomitant]
     Active Substance: PERTUZUMAB

REACTIONS (3)
  - HER-2 positive breast cancer [None]
  - Biopsy lymph gland abnormal [None]
  - Breast mass [None]

NARRATIVE: CASE EVENT DATE: 20180105
